FAERS Safety Report 23334325 (Version 1)
Quarter: 2023Q4

REPORT INFORMATION
  Report Type: Other
  Country: GB (occurrence: GB)
  Receive Date: 20231223
  Receipt Date: 20231223
  Transmission Date: 20240110
  Serious: Yes (Other)
  Sender: FDA-Public Use
  Company Number: None

PATIENT

DRUGS (2)
  1. ATOVAQUONE\PROGUANIL HYDROCHLORIDE [Suspect]
     Active Substance: ATOVAQUONE\PROGUANIL HYDROCHLORIDE
     Indication: Product used for unknown indication
     Dosage: 250MG/100MG
     Route: 048
  2. REVAXIS [Concomitant]
     Active Substance: DIPHTHERIA AND TETANUS TOXOIDS AND POLIOVIRUS VACCINE ANTIGENS
     Indication: Product used for unknown indication
     Dosage: UNK
     Route: 065
     Dates: start: 20231031, end: 20231101

REACTIONS (3)
  - Eye swelling [Unknown]
  - Pharyngeal swelling [Recovered/Resolved]
  - Rash pruritic [Unknown]
